FAERS Safety Report 7427744-1 (Version None)
Quarter: 2011Q2

REPORT INFORMATION
  Report Type: 
  Country: None (occurrence: None)
  Receive Date: 20110421
  Receipt Date: 20110412
  Transmission Date: 20111010
  Serious: Yes (Other)
  Sender: FDA-Public Use
  Company Number: US-ELI_LILLY_AND_COMPANY-US201104004188

PATIENT
  Sex: Female

DRUGS (9)
  1. LISINOPRIL [Concomitant]
     Dosage: 10 MG, UNK
  2. PRILOSEC [Concomitant]
  3. ZYPREXA [Suspect]
     Dosage: 25 MG, UNKNOWN
     Route: 048
  4. NORVASC [Concomitant]
     Dosage: 10 MG, UNK
  5. ZYPREXA RELPREVV [Suspect]
     Indication: SCHIZOPHRENIA
     Dosage: 300 MG, UNKNOWN
     Dates: start: 20110412
  6. ASTUDAL [Concomitant]
  7. DEPAKOTE [Concomitant]
     Dosage: 750 MG, QD
  8. FLUPHENAZINE HCL [Concomitant]
  9. TRILEPTAL [Concomitant]
     Dosage: 300 MG, UNK

REACTIONS (5)
  - OVERDOSE [None]
  - DIZZINESS [None]
  - BLOOD PRESSURE DECREASED [None]
  - DIPLOPIA [None]
  - VISION BLURRED [None]
